FAERS Safety Report 7423322-9 (Version None)
Quarter: 2011Q2

REPORT INFORMATION
  Report Type: 
  Country: None (occurrence: None)
  Receive Date: 20110419
  Receipt Date: 20110404
  Transmission Date: 20111010
  Serious: Yes (Other)
  Sender: FDA-Public Use
  Company Number: PHHY2011JP29828

PATIENT
  Age: 60 Year
  Sex: Male

DRUGS (1)
  1. RASILEZ [Suspect]
     Route: 048

REACTIONS (2)
  - PHOTOSENSITIVITY REACTION [None]
  - SKIN SWELLING [None]
